FAERS Safety Report 6676371-2 (Version None)
Quarter: 2010Q2

REPORT INFORMATION
  Report Type: 
  Country: None (occurrence: None)
  Receive Date: 20100408
  Receipt Date: 20100331
  Transmission Date: 20101027
  Serious: Yes (Other)
  Sender: FDA-Public Use
  Company Number: TPA2010A01677

PATIENT
  Sex: Male

DRUGS (4)
  1. ROZEREM [Suspect]
     Indication: DRUG USE FOR UNKNOWN INDICATION
     Dates: start: 20100317
  2. ZYPREXA [Suspect]
     Indication: DRUG USE FOR UNKNOWN INDICATION
     Dates: end: 20100301
  3. ZOLOFT [Concomitant]
  4. CONCERTA [Concomitant]

REACTIONS (9)
  - DYSPHAGIA [None]
  - DYSTONIA [None]
  - JAW DISORDER [None]
  - MUSCLE SPASMS [None]
  - PHARYNGEAL OEDEMA [None]
  - SPEECH DISORDER [None]
  - TONGUE DISORDER [None]
  - TRANSIENT GLOBAL AMNESIA [None]
  - TRISMUS [None]
